FAERS Safety Report 9276054 (Version 1)
Quarter: 2013Q2

REPORT INFORMATION
  Report Type: Spontaneous
  Country: US (occurrence: US)
  Receive Date: 20130507
  Receipt Date: 20130507
  Transmission Date: 20140414
  Serious: Yes (Other)
  Sender: FDA-Public Use
  Company Number: US-JNJFOC-20130414652

PATIENT
  Age: 79 Year
  Sex: Female
  Weight: 63.5 kg

DRUGS (15)
  1. SANDOZ FENTANYL TRANSDERMAL SYSTEM [Suspect]
     Indication: BACK PAIN
     Route: 062
     Dates: start: 201209
  2. SANDOZ FENTANYL TRANSDERMAL SYSTEM [Suspect]
     Indication: BACK PAIN
     Route: 062
     Dates: start: 201209, end: 201209
  3. SANDOZ FENTANYL TRANSDERMAL SYSTEM [Suspect]
     Indication: BACK PAIN
     Route: 062
     Dates: start: 201109, end: 201209
  4. MYLAN FENTANYL PATCH [Suspect]
     Indication: PRODUCT USED FOR UNKNOWN INDICATION
     Route: 062
  5. PLAVIX [Concomitant]
     Route: 065
     Dates: start: 201203, end: 2013
  6. CELEXA [Concomitant]
     Indication: STRESS
     Route: 048
     Dates: start: 201209
  7. ATENOLOL [Concomitant]
     Indication: HYPERTENSION
     Route: 048
     Dates: start: 201205
  8. MAXIDE [Concomitant]
     Indication: HYPERTENSION
     Dosage: 50 MG 1/2 TABLET DAILY
     Route: 048
  9. VALIUM [Concomitant]
     Indication: SLEEP DISORDER
     Dosage: OR 2.5 MG X 2 TABLETS
     Route: 048
  10. VALIUM [Concomitant]
     Indication: STRESS
     Dosage: OR 2.5 MG X 2 TABLETS
     Route: 048
  11. ASPIRIN [Concomitant]
     Indication: CARDIAC DISORDER
     Route: 048
  12. RANITIDINE [Concomitant]
     Indication: GASTROOESOPHAGEAL REFLUX DISEASE
     Route: 048
  13. METAMUCIL [Concomitant]
     Indication: HERNIA
     Dosage: ONE TO THREE TIMES
     Route: 048
  14. ULTRACET [Concomitant]
     Indication: PAIN
     Route: 048
     Dates: start: 201203
  15. TYLENOL [Concomitant]
     Indication: PAIN
     Route: 048

REACTIONS (9)
  - Coronary arterial stent insertion [Unknown]
  - Hypertension [Unknown]
  - Ulcer haemorrhage [Unknown]
  - Fall [Recovered/Resolved]
  - Dizziness [Recovered/Resolved]
  - Pain [Recovered/Resolved]
  - Nausea [Not Recovered/Not Resolved]
  - Overdose [Unknown]
  - Product quality issue [None]
